FAERS Safety Report 9879385 (Version 1)
Quarter: 2014Q1

REPORT INFORMATION
  Report Type: Spontaneous
  Country: ES (occurrence: ES)
  Receive Date: 20140206
  Receipt Date: 20140206
  Transmission Date: 20141002
  Serious: Yes (Other)
  Sender: FDA-Public Use
  Company Number: ES-KOWA-2014S1000075

PATIENT
  Age: 64 Year
  Sex: Male

DRUGS (3)
  1. ALIPZA [Suspect]
     Indication: TYPE IIA HYPERLIPIDAEMIA
     Route: 048
     Dates: start: 20131220, end: 20131227
  2. SALOFALK                           /00000301/ [Concomitant]
     Indication: PRODUCT USED FOR UNKNOWN INDICATION
  3. ANAGASTRA [Concomitant]
     Indication: PRODUCT USED FOR UNKNOWN INDICATION
     Dates: start: 20131220

REACTIONS (9)
  - Myalgia [Recovering/Resolving]
  - Arthralgia [Recovering/Resolving]
  - Muscle spasms [Recovering/Resolving]
  - Abdominal pain [Recovering/Resolving]
  - Myopathy [Recovering/Resolving]
  - Temperature regulation disorder [Unknown]
  - Blood creatine phosphokinase increased [Recovering/Resolving]
  - Leukocytosis [Unknown]
  - Neutrophilia [Unknown]
